FAERS Safety Report 23682271 (Version 1)
Quarter: 2024Q1

REPORT INFORMATION
  Report Type: Spontaneous
  Country: NL (occurrence: NL)
  Receive Date: 20240328
  Receipt Date: 20240328
  Transmission Date: 20240410
  Serious: Yes (Death, Life-Threatening, Hospitalization, Other)
  Sender: FDA-Public Use
  Company Number: NL-NOVPHSZ-PHHY2017NL190982

PATIENT
  Age: 73 Year
  Sex: Male

DRUGS (3)
  1. ACETAMINOPHEN [Interacting]
     Active Substance: ACETAMINOPHEN
     Indication: Pain
     Dosage: 1 GRAM, TID
     Route: 054
  2. FLUCLOXACILLIN [Interacting]
     Active Substance: FLUCLOXACILLIN
     Indication: Antibiotic therapy
     Dosage: 6 GRAM, QD
     Route: 042
  3. ACETAMINOPHEN [Interacting]
     Active Substance: ACETAMINOPHEN
     Indication: Pain
     Dosage: 1 GRAM, TID
     Route: 042

REACTIONS (12)
  - Cardiopulmonary failure [Fatal]
  - PCO2 decreased [Recovered/Resolved]
  - Confusional state [Recovered/Resolved]
  - Tachypnoea [Recovered/Resolved]
  - Pyroglutamate increased [Recovered/Resolved]
  - Blood bicarbonate decreased [Recovered/Resolved]
  - Blood sodium increased [Recovered/Resolved]
  - Blood chloride increased [Recovered/Resolved]
  - Blood albumin decreased [Recovered/Resolved]
  - Anion gap increased [Recovered/Resolved]
  - Metabolic acidosis [Recovered/Resolved]
  - Drug interaction [Recovered/Resolved]
